FAERS Safety Report 9557062 (Version 2)
Quarter: 2013Q4

REPORT INFORMATION
  Report Type: Report from Study
  Country: US (occurrence: US)
  Receive Date: 20130926
  Receipt Date: 20131024
  Transmission Date: 20140711
  Serious: Yes (Hospitalization)
  Sender: FDA-Public Use
  Company Number: US-JNJFOC-20130912115

PATIENT
  Age: 12 Year
  Sex: Female
  Weight: 34.7 kg

DRUGS (1)
  1. REMICADE [Suspect]
     Indication: CROHN^S DISEASE
     Route: 042
     Dates: start: 20120409, end: 20130418

REACTIONS (1)
  - Intervertebral discitis [Recovered/Resolved with Sequelae]
